FAERS Safety Report 8450499-9 (Version None)
Quarter: 2012Q2

REPORT INFORMATION
  Report Type: 
  Country: None (occurrence: None)
  Receive Date: 20120620
  Receipt Date: 20120612
  Transmission Date: 20120825
  Serious: Yes (Other)
  Sender: FDA-Public Use
  Company Number: CH-SANOFI-AVENTIS-2011SA055036

PATIENT
  Age: 24 Year
  Sex: Female

DRUGS (4)
  1. LEXOTANIL [Suspect]
     Route: 065
  2. COCAINE [Suspect]
     Route: 065
  3. ZOLPIDEM TARTRATE [Suspect]
     Route: 065
  4. ALCOHOL [Suspect]
     Route: 065

REACTIONS (1)
  - MATERNAL EXPOSURE DURING PREGNANCY [None]
